FAERS Safety Report 21754788 (Version 1)
Quarter: 2022Q4

REPORT INFORMATION
  Report Type: Spontaneous
  Country: US (occurrence: US)
  Receive Date: 20221220
  Receipt Date: 20221220
  Transmission Date: 20230113
  Serious: No
  Sender: FDA-Public Use
  Company Number: US-PFIZER INC-PV202200035068

PATIENT
  Age: 64 Year
  Sex: Female

DRUGS (1)
  1. XELJANZ [Suspect]
     Active Substance: TOFACITINIB CITRATE
     Dosage: 5 MG, 2X/DAY (XELJANZ TAB 5MG TAKE 1 TABLET BY MOUTH TWICE DAILY MAY BE TAKEN WITH OR WITHOUT FOOD)
     Route: 048

REACTIONS (2)
  - COVID-19 [Unknown]
  - Product dose omission issue [Unknown]
